FAERS Safety Report 18049066 (Version 1)
Quarter: 2020Q3

REPORT INFORMATION
  Report Type: Spontaneous
  Country: US (occurrence: US)
  Receive Date: 20200721
  Receipt Date: 20200721
  Transmission Date: 20201103
  Serious: Yes (Hospitalization)
  Sender: FDA-Public Use
  Company Number: US-BRAINTREE LABORATORIES-200219-1

PATIENT
  Age: 62 Year
  Sex: Male
  Weight: 83.91 kg

DRUGS (1)
  1. SUPREP BOWEL PREP [Suspect]
     Active Substance: MAGNESIUM SULFATE\POTASSIUM SULFATE\SODIUM SULFATE
     Indication: COLONOSCOPY
     Dosage: 1 X 6 OZ. BOTTLE
     Route: 048
     Dates: start: 20180520, end: 20180520

REACTIONS (12)
  - Facial bones fracture [None]
  - Swelling face [None]
  - Skin laceration [None]
  - Epistaxis [None]
  - Dehydration [None]
  - Paraesthesia [None]
  - Arthralgia [None]
  - Haemorrhage [None]
  - Hypoaesthesia [None]
  - Spinal fracture [None]
  - Neck pain [None]
  - Syncope [None]

NARRATIVE: CASE EVENT DATE: 20180521
